FAERS Safety Report 9167279 (Version 1)
Quarter: 2013Q1

REPORT INFORMATION
  Report Type: Spontaneous
  Country: US (occurrence: None)
  Receive Date: 20130228
  Receipt Date: 20130228
  Transmission Date: 20140127
  Serious: Yes (Other)
  Sender: FDA-Public Use
  Company Number: JPI-P-030095

PATIENT
  Age: 55 Year
  Sex: Female

DRUGS (1)
  1. XYREM (500 MILLIGRAM/ MILLILITERS, SOLUTION) (SODIUM OXYBATE) [Suspect]
     Indication: HYPERSOMNIA
     Route: 048
     Dates: start: 20090616, end: 2009

REACTIONS (9)
  - Myocardial infarction [None]
  - Cerebrovascular accident [None]
  - Convulsion [None]
  - Electrocardiogram abnormal [None]
  - Fall [None]
  - Balance disorder [None]
  - Memory impairment [None]
  - Insomnia [None]
  - Somnolence [None]
